FAERS Safety Report 8414333-5 (Version None)
Quarter: 2012Q2

REPORT INFORMATION
  Report Type: 
  Country: None (occurrence: None)
  Receive Date: 20120605
  Receipt Date: 20120523
  Transmission Date: 20120825
  Serious: Yes (Other)
  Sender: FDA-Public Use
  Company Number: DE-MYLANLABS-2012S1010754

PATIENT
  Age: 38 Year
  Sex: Female

DRUGS (4)
  1. METFORMIN HCL [Suspect]
     Indication: INSULIN RESISTANCE
     Dosage: 1500 [MG/D ]/ 1500 MG/D UNTIL GW 18, AFTERWARDS 1000 MG/D
     Route: 048
     Dates: start: 20091015, end: 20100629
  2. METFORMIN HCL [Suspect]
  3. FOLIC ACID [Concomitant]
     Indication: PROPHYLAXIS OF NEURAL TUBE DEFECT
     Dosage: 0-12 GW
     Route: 048
  4. PRESINOL [Concomitant]
     Indication: PRE-ECLAMPSIA
     Dosage: 29-36.5 GW
     Route: 048
     Dates: start: 20100629

REACTIONS (5)
  - PRE-ECLAMPSIA [None]
  - OBSTRUCTED LABOUR [None]
  - MATERNAL EXPOSURE DURING PREGNANCY [None]
  - OLIGOHYDRAMNIOS [None]
  - INSULIN RESISTANCE [None]
